FAERS Safety Report 8273530-2 (Version None)
Quarter: 2012Q2

REPORT INFORMATION
  Report Type: 
  Country: None (occurrence: None)
  Receive Date: 20120411
  Receipt Date: 20120409
  Transmission Date: 20120825
  Serious: Yes (Life-Threatening, Hospitalization, Other)
  Sender: FDA-Public Use
  Company Number: MX-SANOFI-AVENTIS-2012SA017275

PATIENT
  Age: 29 Year
  Sex: Female
  Weight: 47 kg

DRUGS (4)
  1. HUMULIN R [Concomitant]
     Indication: TYPE 2 DIABETES MELLITUS
     Dates: end: 20050101
  2. METFORMIN HCL [Concomitant]
     Indication: TYPE 2 DIABETES MELLITUS
     Dates: end: 20050101
  3. LANTUS [Suspect]
     Indication: TYPE 2 DIABETES MELLITUS
     Route: 058
     Dates: start: 20050101, end: 20070101
  4. LANTUS [Suspect]
     Route: 058
     Dates: start: 20070101

REACTIONS (7)
  - WEIGHT DECREASED [None]
  - HYPERGLYCAEMIA [None]
  - RENAL FAILURE CHRONIC [None]
  - VISION BLURRED [None]
  - DIABETIC COMA [None]
  - GENERALISED OEDEMA [None]
  - DEAFNESS UNILATERAL [None]
